FAERS Safety Report 7761831-3 (Version None)
Quarter: 2011Q3

REPORT INFORMATION
  Report Type: 
  Country: None (occurrence: None)
  Receive Date: 20110920
  Receipt Date: 20110910
  Transmission Date: 20111222
  Serious: Yes (Hospitalization, Other)
  Sender: FDA-Public Use
  Company Number: JP-PFIZER INC-2011218707

PATIENT
  Age: 73 Year
  Sex: Female

DRUGS (3)
  1. THIAMAZOLE [Concomitant]
     Indication: HYPERTHYROIDISM
     Dosage: 5 MG, 1X/DAY
  2. LANSOPRAZOLE [Suspect]
     Indication: GASTROOESOPHAGEAL REFLUX DISEASE
     Dosage: 15 MG, DAILY
     Route: 048
  3. DISOPYRAMIDE [Interacting]
     Indication: ATRIAL FIBRILLATION
     Dosage: 300 MG, DAILY
     Route: 048

REACTIONS (7)
  - DRUG INTERACTION [None]
  - SINUS BRADYCARDIA [None]
  - ELECTROCARDIOGRAM QT PROLONGED [None]
  - TORSADE DE POINTES [None]
  - RENAL IMPAIRMENT [None]
  - THYROID DISORDER [None]
  - THYROXINE DECREASED [None]
